FAERS Safety Report 9431322 (Version 1)
Quarter: 2013Q3

REPORT INFORMATION
  Report Type: Spontaneous
  Country: US (occurrence: US)
  Receive Date: 20130730
  Receipt Date: 20130730
  Transmission Date: 20140515
  Serious: No
  Sender: FDA-Public Use
  Company Number: US-JHP PHARMACEUTICALS, LLC-JHP201200429

PATIENT
  Sex: Male

DRUGS (1)
  1. CORTISPORIN TC OTIC [Suspect]
     Indication: EAR INFECTION
     Dosage: INTO BOTH EARS
     Route: 061
     Dates: start: 20120814, end: 20120821

REACTIONS (2)
  - Ear pruritus [Recovering/Resolving]
  - Ear swelling [Recovering/Resolving]
